FAERS Safety Report 7969862-5 (Version None)
Quarter: 2011Q4

REPORT INFORMATION
  Report Type: 
  Country: None (occurrence: None)
  Receive Date: 20111212
  Receipt Date: 20111201
  Transmission Date: 20120403
  Serious: Yes (Hospitalization, Other)
  Sender: FDA-Public Use
  Company Number: US-BAYER-2011-040620

PATIENT
  Sex: Female
  Weight: 102.4 kg

DRUGS (1)
  1. YASMIN [Suspect]
     Indication: CONTRACEPTION
     Dosage: UNK
     Dates: start: 20051201, end: 20060301

REACTIONS (14)
  - EMOTIONAL DISTRESS [None]
  - PAIN [None]
  - PLEURAL EFFUSION [None]
  - ANXIETY [None]
  - ATELECTASIS [None]
  - PAIN IN EXTREMITY [None]
  - DIZZINESS [None]
  - IMPAIRED WORK ABILITY [None]
  - DRUG DOSE OMISSION [None]
  - INJURY [None]
  - CHEST PAIN [None]
  - PULMONARY EMBOLISM [None]
  - NAUSEA [None]
  - FATIGUE [None]
